FAERS Safety Report 8322740-4 (Version None)
Quarter: 2012Q2

REPORT INFORMATION
  Report Type: 
  Country: None (occurrence: None)
  Receive Date: 20120430
  Receipt Date: 20120420
  Transmission Date: 20120825
  Serious: Yes (Other)
  Sender: FDA-Public Use
  Company Number: US-BRISTOL-MYERS SQUIBB COMPANY-16539827

PATIENT
  Age: 59 Year
  Sex: Male
  Weight: 141 kg

DRUGS (4)
  1. METFORMIN HCL [Suspect]
     Indication: DIABETES MELLITUS
  2. ABILIFY [Suspect]
     Indication: MAJOR DEPRESSION
  3. ABILIFY [Suspect]
     Indication: PSYCHOTIC DISORDER
  4. PAXIL [Suspect]

REACTIONS (2)
  - NEPHROLITHIASIS [None]
  - BLOOD GLUCOSE INCREASED [None]
